FAERS Safety Report 9813417 (Version 1)
Quarter: 2014Q1

REPORT INFORMATION
  Report Type: Spontaneous
  Country: US (occurrence: None)
  Receive Date: 20140109
  Receipt Date: 20140109
  Transmission Date: 20141002
  Serious: Yes (Other)
  Sender: FDA-Public Use
  Company Number: 2114297

PATIENT
  Age: 26 Day
  Sex: Female

DRUGS (7)
  1. CEFOTAXIME SODIUM [Suspect]
     Indication: SEPSIS
  2. (GENTAMICIN SULFATE) [Suspect]
     Indication: SEPSIS
  3. (MEROPENEM) [Suspect]
     Indication: ANTIBIOTIC THERAPY
  4. (VANCOMYCIN HYDROCHLORIDE) [Suspect]
     Indication: SEPSIS
  5. AMPICILLIN [Suspect]
     Indication: SEPSIS
  6. (AMPHOTERICIN) [Concomitant]
  7. (FLUCONAZOLE) [Concomitant]

REACTIONS (6)
  - Leuconostoc infection [None]
  - Sepsis [None]
  - Thrombocytopenia [None]
  - Bandaemia [None]
  - Apnoea [None]
  - Bradycardia [None]
